FAERS Safety Report 25757239 (Version 1)
Quarter: 2025Q3

REPORT INFORMATION
  Report Type: Spontaneous
  Country: US (occurrence: US)
  Receive Date: 20250903
  Receipt Date: 20250903
  Transmission Date: 20251021
  Serious: Yes (Death)
  Sender: AMGEN
  Company Number: US-AMGEN-USASP2025171174

PATIENT

DRUGS (2)
  1. BEVACIZUMAB [Suspect]
     Active Substance: BEVACIZUMAB
     Indication: Cervix carcinoma recurrent
     Route: 065
  2. PEMBROLIZUMAB [Concomitant]
     Active Substance: PEMBROLIZUMAB
     Indication: Cervix carcinoma
     Route: 065

REACTIONS (3)
  - Cervix carcinoma recurrent [Fatal]
  - Thyroid disorder [Unknown]
  - Toxicity to various agents [Unknown]
